FAERS Safety Report 20335663 (Version 1)
Quarter: 2022Q1

REPORT INFORMATION
  Report Type: Report from Study
  Country: US (occurrence: US)
  Receive Date: 20220114
  Receipt Date: 20220114
  Transmission Date: 20220423
  Serious: No
  Sender: FDA-Public Use
  Company Number: US-SUNOVION-2022SUN000008

PATIENT
  Sex: Female

DRUGS (4)
  1. LONHALA MAGNAIR [Suspect]
     Active Substance: GLYCOPYRROLATE
     Dosage: UNK
     Route: 055
  2. YUPELRI [Concomitant]
     Active Substance: REVEFENACIN
  3. BUDESONIDE [Concomitant]
     Active Substance: BUDESONIDE
  4. BROVANA [Concomitant]
     Active Substance: ARFORMOTEROL TARTRATE

REACTIONS (1)
  - Drug ineffective [Unknown]
